FAERS Safety Report 21470749 (Version 2)
Quarter: 2022Q4

REPORT INFORMATION
  Report Type: Report from Study
  Country: MX (occurrence: MX)
  Receive Date: 20221018
  Receipt Date: 20221101
  Transmission Date: 20230113
  Serious: Yes (Other)
  Sender: FDA-Public Use
  Company Number: MX-BoehringerIngelheim-2022-BI-187115

PATIENT
  Age: 83 Year
  Sex: Male
  Weight: 47 kg

DRUGS (1)
  1. OFEV [Suspect]
     Active Substance: NINTEDANIB
     Indication: Idiopathic pulmonary fibrosis
     Route: 048
     Dates: start: 20220729

REACTIONS (16)
  - Idiopathic pulmonary fibrosis [Not Recovered/Not Resolved]
  - Haematemesis [Unknown]
  - Decreased appetite [Not Recovered/Not Resolved]
  - Weight decreased [Recovering/Resolving]
  - Pharyngitis [Recovered/Resolved]
  - Constipation [Recovered/Resolved with Sequelae]
  - Gastrointestinal infection [Recovered/Resolved]
  - Weight decreased [Not Recovered/Not Resolved]
  - Productive cough [Not Recovered/Not Resolved]
  - Haemorrhoids [Unknown]
  - Lipoma [Unknown]
  - Decreased appetite [Not Recovered/Not Resolved]
  - Sputum discoloured [Recovering/Resolving]
  - Fatigue [Unknown]
  - Vomiting [Unknown]
  - Drug tolerance [Unknown]

NARRATIVE: CASE EVENT DATE: 20220801
